FAERS Safety Report 7289750-X (Version None)
Quarter: 2011Q1

REPORT INFORMATION
  Report Type: 
  Country: None (occurrence: None)
  Receive Date: 20110214
  Receipt Date: 20110204
  Transmission Date: 20110831
  Serious: No
  Sender: FDA-Public Use
  Company Number: US-BIOGENIDEC-2011BI004446

PATIENT
  Age: 43 Year
  Sex: Female

DRUGS (1)
  1. TYSABRI [Suspect]
     Indication: MULTIPLE SCLEROSIS
     Route: 042
     Dates: start: 20100901

REACTIONS (9)
  - DYSPHEMIA [None]
  - MIGRAINE [None]
  - URINARY TRACT INFECTION [None]
  - MEMORY IMPAIRMENT [None]
  - ABDOMINAL PAIN UPPER [None]
  - ARTHRALGIA [None]
  - NAUSEA [None]
  - VOMITING [None]
  - DIARRHOEA [None]
